FAERS Safety Report 4997389-1 (Version None)
Quarter: 2006Q1

REPORT INFORMATION
  Report Type: 
  Country: None (occurrence: None)
  Receive Date: 20060315
  Receipt Date: 20051121
  Transmission Date: 20060701
  Serious: Yes (Other)
  Sender: FDA-Public Use
  Company Number: 425631

PATIENT
  Age: 68 Year
  Sex: Female
  Weight: 72.6 kg

DRUGS (1)
  1. BONIVA [Suspect]
     Indication: OSTEOPOROSIS
     Dosage: ORAL
     Route: 048
     Dates: start: 20051015, end: 20051015

REACTIONS (9)
  - ABDOMINAL PAIN [None]
  - ASTHENIA [None]
  - DIZZINESS [None]
  - DYSPEPSIA [None]
  - HEADACHE [None]
  - INITIAL INSOMNIA [None]
  - NAUSEA [None]
  - RASH PAPULAR [None]
  - RASH PRURITIC [None]
